FAERS Safety Report 13428369 (Version 1)
Quarter: 2017Q2

REPORT INFORMATION
  Report Type: Spontaneous
  Country: US (occurrence: US)
  Receive Date: 20170411
  Receipt Date: 20170411
  Transmission Date: 20170830
  Serious: No
  Sender: FDA-Public Use
  Company Number: US-ASTRAZENECA-2017SE36120

PATIENT
  Age: 50 Year
  Sex: Female
  Weight: 70.3 kg

DRUGS (5)
  1. LIPITOR [Concomitant]
     Active Substance: ATORVASTATIN CALCIUM
     Dates: start: 2015
  2. CRESTOR [Suspect]
     Active Substance: ROSUVASTATIN CALCIUM
     Indication: BLOOD CHOLESTEROL INCREASED
     Route: 048
     Dates: start: 201701
  3. TOPROL XL [Suspect]
     Active Substance: METOPROLOL SUCCINATE
     Indication: CARDIAC DISORDER
     Route: 048
     Dates: start: 2007
  4. TOPROL XL [Suspect]
     Active Substance: METOPROLOL SUCCINATE
     Indication: HEART RATE IRREGULAR
     Route: 048
     Dates: start: 2007
  5. PREMPRO [Concomitant]
     Active Substance: ESTROGENS, CONJUGATED\MEDROXYPROGESTERONE ACETATE
     Indication: MENOPAUSE
     Route: 065
     Dates: start: 2014

REACTIONS (10)
  - Pruritus [Unknown]
  - Eczema [Unknown]
  - Blood cholesterol increased [Unknown]
  - Infection [Unknown]
  - Rash [Unknown]
  - Abdominal discomfort [Unknown]
  - Urticaria [Unknown]
  - Erythema [Unknown]
  - Weight increased [Unknown]
  - Menopause [Unknown]

NARRATIVE: CASE EVENT DATE: 2015
